FAERS Safety Report 23084988 (Version 3)
Quarter: 2023Q4

REPORT INFORMATION
  Report Type: Report from Study
  Country: IE (occurrence: IE)
  Receive Date: 20231019
  Receipt Date: 20231101
  Transmission Date: 20240110
  Serious: Yes (Hospitalization)
  Sender: FDA-Public Use
  Company Number: IE-Eisai-EC-2023-150626

PATIENT
  Age: 56 Year
  Sex: Male
  Weight: 62.1 kg

DRUGS (17)
  1. LENVATINIB [Suspect]
     Active Substance: LENVATINIB
     Indication: Clear cell renal cell carcinoma
     Dosage: STARTING DOSE AT 20 MG, QD, FLUCTUATED DOSAGE
     Route: 048
     Dates: start: 20230406, end: 20230927
  2. QUAVONLIMAB [Suspect]
     Active Substance: QUAVONLIMAB
     Indication: Clear cell renal cell carcinoma
     Dosage: QUAVONLIMAB 25 MG (+) PEMBROLIZUMAB 400 MG
     Route: 042
     Dates: start: 20230406, end: 20230927
  3. ZOLPIDEM [Concomitant]
     Active Substance: ZOLPIDEM TARTRATE
     Dates: start: 202301
  4. FOLIC ACID [Concomitant]
     Active Substance: FOLIC ACID
     Dates: start: 202211
  5. SOLPADEIN [Concomitant]
     Dates: start: 202211
  6. SILCOCK^S BASE CREAM [Concomitant]
     Dates: start: 20230530
  7. ELOCON CREAM [Concomitant]
     Dates: start: 20230530
  8. CYCLIZINE [Concomitant]
     Active Substance: CYCLIZINE
     Dates: start: 20230828
  9. THIAMINE [Concomitant]
     Active Substance: THIAMINE
     Dates: start: 20230829
  10. VITAMINS NOS [Concomitant]
     Active Substance: VITAMINS
     Dates: start: 20230829
  11. ENSURE COMPACT [Concomitant]
     Dates: start: 20230829
  12. HYDROCORTISONE [Concomitant]
     Active Substance: HYDROCORTISONE
     Dates: start: 20230831, end: 20231019
  13. ACETAMINOPHEN [Concomitant]
     Active Substance: ACETAMINOPHEN
     Dates: start: 20230825
  14. ONDANSETRON [Concomitant]
     Active Substance: ONDANSETRON
     Dates: start: 20230830
  15. AMLODIPINE [Concomitant]
     Active Substance: AMLODIPINE BESYLATE
     Dates: start: 202211
  16. LEVOTHYROXINE [Concomitant]
     Active Substance: LEVOTHYROXINE
     Dates: start: 20230909
  17. PEMBROLIZUMAB [Suspect]
     Active Substance: PEMBROLIZUMAB

REACTIONS (1)
  - Mastitis [Not Recovered/Not Resolved]

NARRATIVE: CASE EVENT DATE: 20231002
